FAERS Safety Report 19284888 (Version 3)
Quarter: 2021Q2

REPORT INFORMATION
  Report Type: Spontaneous
  Country: NZ (occurrence: NZ)
  Receive Date: 20210521
  Receipt Date: 20210616
  Transmission Date: 20210717
  Serious: Yes (Death)
  Sender: FDA-Public Use
  Company Number: NZ-MYLANLABS-2021M1029923

PATIENT
  Age: 80 Year
  Sex: Male

DRUGS (11)
  1. CLOZARIL [Suspect]
     Active Substance: CLOZAPINE
     Indication: HALLUCINATION
  2. HYOSCINE BUTYLBROMIDE SXP [Concomitant]
     Dosage: 20 MILLIGRAM,AS NEEDED 4?6 HOURLY FOR SECRETIONS. MAX 60 MG/DAY ? 10
     Route: 058
  3. PARACETAMOL [Concomitant]
     Active Substance: ACETAMINOPHEN
     Dosage: 250 MG/5 ML SUSP ? 20 MLS, 4 TIMES A DAY/6 HOURLY PRN
     Dates: start: 20200907
  4. CLOZARIL [Suspect]
     Active Substance: CLOZAPINE
     Indication: SCHIZOPHRENIA
     Dosage: 125 MILLIGRAM, QD
     Route: 048
     Dates: start: 20161214, end: 20210510
  5. CARBIDOPA + L?DOPA [Concomitant]
     Active Substance: CARBIDOPA\LEVODOPA
     Dosage: UNK
  6. HEALTHE FATTY CREAM [Concomitant]
     Dosage: APPLY TWICE DAILY
     Dates: start: 20200907
  7. KINSON [Concomitant]
     Active Substance: CARBIDOPA\LEVODOPA
     Dosage: 1 TAB AT 0700, 0900, 1100, 1300, 1500 AND 1700
  8. FORTISIP COMPACT [Concomitant]
     Active Substance: CARBOHYDRATES\FATTY ACIDS\MINERALS\PROTEIN\VITAMINS
     Dosage: 200 MLS, TWICE A DAY / 12 HOURLY MAKE THE CONSISTENCY SUITABLE TO REDUCE THE RISK OF ASPIRATION
  9. HYDROXOCOBALAMIN ACETATE W/KETOPROFEN/PYRIDOX [Concomitant]
     Dosage: 1000 MCG/1 ML LNJ ? 1 VIALS, EVERY MONTH ? 1
     Dates: start: 20200907
  10. LACTULOSE AIWA [Concomitant]
     Dosage: 10 G/15 ML ORAL SOLN ? 30 MLS, TWICE A DAY / 12 HOURLY
     Dates: start: 20200907
  11. HYOSCINE BUTYLBROMIDE SXP [Concomitant]
     Dosage: 1 MG/72 HR TRANSDERMAL PATCH (1.5 MG/PATCH) ? 1 PATCH EVERY 72 HOURSUNK
     Dates: start: 20210222

REACTIONS (1)
  - Dementia [Fatal]

NARRATIVE: CASE EVENT DATE: 20210510
